FAERS Safety Report 14505002 (Version 1)
Quarter: 2018Q1

REPORT INFORMATION
  Report Type: Spontaneous
  Country: US (occurrence: US)
  Receive Date: 20180208
  Receipt Date: 20180208
  Transmission Date: 20180509
  Serious: No
  Sender: FDA-Public Use
  Company Number: US-JNJFOC-20171234868

PATIENT
  Sex: Male

DRUGS (5)
  1. IMBRUVICA [Suspect]
     Active Substance: IBRUTINIB
     Indication: CHRONIC LYMPHOCYTIC LEUKAEMIA
     Route: 048
     Dates: start: 20170421, end: 2017
  2. ACYCLOVIR. [Concomitant]
     Active Substance: ACYCLOVIR
  3. KEFLEX [Concomitant]
     Active Substance: CEPHALEXIN
     Dosage: 500 MG ONE TABLET EVERY 6 HOURS FOR 5 DAYS
  4. SYNTHROID [Concomitant]
     Active Substance: LEVOTHYROXINE SODIUM
     Dosage: 200 MCG, QD
  5. ALLOPURINOL. [Concomitant]
     Active Substance: ALLOPURINOL
     Route: 048

REACTIONS (3)
  - Skin mass [Unknown]
  - Erythema [Unknown]
  - Skin ulcer [Unknown]
